FAERS Safety Report 23637015 (Version 1)
Quarter: 2024Q1

REPORT INFORMATION
  Report Type: Spontaneous
  Country: US (occurrence: US)
  Receive Date: 20240315
  Receipt Date: 20240315
  Transmission Date: 20240410
  Serious: No
  Sender: FDA-Public Use
  Company Number: US-TEVA-VS-3140833

PATIENT
  Age: 43 Year
  Sex: Male

DRUGS (17)
  1. PENICILLIN [Suspect]
     Active Substance: PENICILLIN
     Indication: Product used for unknown indication
     Route: 065
  2. ALLOPURINOL [Concomitant]
     Active Substance: ALLOPURINOL
  3. DIPHENHYDRAMINE [Concomitant]
     Active Substance: DIPHENHYDRAMINE
  4. GUAIFENESIN [Concomitant]
     Active Substance: GUAIFENESIN
  5. HYDROCORTISONE SODIUM SUCCINATE [Concomitant]
     Active Substance: HYDROCORTISONE SODIUM SUCCINATE
  6. ACETAMINOPHEN [Concomitant]
     Active Substance: ACETAMINOPHEN
  7. CALCIUM CARBONATE [Concomitant]
     Active Substance: CALCIUM CARBONATE
  8. PANTOPRAZOLE [Concomitant]
     Active Substance: PANTOPRAZOLE
  9. POLYETHYLENE GLYCOL [Concomitant]
     Active Substance: POLYETHYLENE GLYCOL
  10. SIROLIMUS [Concomitant]
     Active Substance: SIROLIMUS
  11. ENTECAVIR [Concomitant]
     Active Substance: ENTECAVIR
  12. FAMOTIDINE [Concomitant]
     Active Substance: FAMOTIDINE
  13. HEPARIN [Concomitant]
     Active Substance: HEPARIN SODIUM
  14. OXYMETAZOLINE [Concomitant]
     Active Substance: OXYMETAZOLINE
  15. ACYCLOVIR [Concomitant]
     Active Substance: ACYCLOVIR
  16. EPINEPHRINE [Concomitant]
     Active Substance: EPINEPHRINE
  17. PROCHLORPERAZINE [Concomitant]
     Active Substance: PROCHLORPERAZINE

REACTIONS (1)
  - Rash [Unknown]
